FAERS Safety Report 20999856 (Version 1)
Quarter: 2022Q2

REPORT INFORMATION
  Report Type: Spontaneous
  Country: US (occurrence: US)
  Receive Date: 20220623
  Receipt Date: 20220623
  Transmission Date: 20220721
  Serious: No
  Sender: FDA-Public Use
  Company Number: US-PFIZER INC-202200864296

PATIENT
  Age: 71 Year
  Sex: Male
  Weight: 83.01 kg

DRUGS (1)
  1. PAXLOVID [Suspect]
     Active Substance: NIRMATRELVIR\RITONAVIR
     Indication: COVID-19 treatment
     Dosage: [PF-07321332 300 MG]/[RITONAVIR 100 MG]; 2X/DAY
     Route: 048
     Dates: start: 20220619

REACTIONS (7)
  - Dysgeusia [Not Recovered/Not Resolved]
  - Feeling jittery [Unknown]
  - Restlessness [Unknown]
  - Disorientation [Unknown]
  - Balance disorder [Unknown]
  - Dizziness [Unknown]
  - Nervous system disorder [Unknown]

NARRATIVE: CASE EVENT DATE: 20220601
